FAERS Safety Report 7692194-X (Version None)
Quarter: 2011Q3

REPORT INFORMATION
  Report Type: 
  Country: None (occurrence: None)
  Receive Date: 20110818
  Receipt Date: 20110809
  Transmission Date: 20111222
  Serious: Yes (Other)
  Sender: FDA-Public Use
  Company Number: US-CEPHALON-2011004198

PATIENT
  Sex: Female
  Weight: 54 kg

DRUGS (1)
  1. NUVIGIL [Suspect]
     Indication: FATIGUE
     Route: 048
     Dates: start: 20110701, end: 20110807

REACTIONS (16)
  - ORAL DISCOMFORT [None]
  - PALPITATIONS [None]
  - HOT FLUSH [None]
  - HYPOAESTHESIA ORAL [None]
  - SWOLLEN TONGUE [None]
  - DYSPNOEA [None]
  - HYPOAESTHESIA [None]
  - FACE OEDEMA [None]
  - HEPATIC ENZYME INCREASED [None]
  - DIZZINESS [None]
  - ANXIETY [None]
  - PHARYNGEAL OEDEMA [None]
  - HEART RATE INCREASED [None]
  - GLOSSODYNIA [None]
  - TONGUE DISCOLOURATION [None]
  - LUNG NEOPLASM [None]
